FAERS Safety Report 8448931-X (Version None)
Quarter: 2012Q2

REPORT INFORMATION
  Report Type: 
  Country: None (occurrence: None)
  Receive Date: 20120619
  Receipt Date: 20120608
  Transmission Date: 20120825
  Serious: Yes (Other)
  Sender: FDA-Public Use
  Company Number: PT-GLAXOSMITHKLINE-B0807982A

PATIENT
  Age: 11 Year
  Sex: Male

DRUGS (1)
  1. PAROXETINE HCL [Suspect]
     Indication: PRODUCT USED FOR UNKNOWN INDICATION
     Dosage: 20MG PER DAY
     Route: 048
     Dates: end: 20101101

REACTIONS (6)
  - AGGRESSION [None]
  - OFF LABEL USE [None]
  - RESTLESSNESS [None]
  - EUPHORIC MOOD [None]
  - TREMOR [None]
  - DISTURBANCE IN ATTENTION [None]
